FAERS Safety Report 7061922-9 (Version None)
Quarter: 2010Q4

REPORT INFORMATION
  Report Type: 
  Country: None (occurrence: None)
  Receive Date: 20101026
  Receipt Date: 20101018
  Transmission Date: 20110411
  Serious: Yes (Hospitalization)
  Sender: FDA-Public Use
  Company Number: BR-SHIRE-SPV1-2010-01628

PATIENT
  Sex: Male
  Weight: 28.4 kg

DRUGS (5)
  1. ELAPRASE [Suspect]
     Indication: MUCOPOLYSACCHARIDOSIS II
     Route: 041
     Dates: start: 20080101
  2. HYDROXIZINE [Concomitant]
     Indication: PREMEDICATION
     Dosage: UNK, UNKNOWN
     Route: 065
  3. PREDNISONE [Concomitant]
     Indication: PREMEDICATION
     Dosage: 1 MG/KG ONE HOUR BEFORE ELAPRASE INFUSION, OTHER
     Route: 065
  4. PARACETAMOL [Concomitant]
     Indication: PREMEDICATION
     Dosage: UNK, UNKNOWN
     Route: 065
  5. BETA 2 AGONISTS [Concomitant]

REACTIONS (2)
  - RASH [None]
  - SUPRAVENTRICULAR TACHYCARDIA [None]
